FAERS Safety Report 9010169 (Version 2)
Quarter: 2013Q1

REPORT INFORMATION
  Report Type: Report from Study
  Country: JP (occurrence: JP)
  Receive Date: 20130111
  Receipt Date: 20130326
  Transmission Date: 20140127
  Serious: Yes (Hospitalization)
  Sender: FDA-Public Use
  Company Number: JP-009507513-1301JPN004434

PATIENT
  Age: 24 Year
  Sex: Male

DRUGS (5)
  1. ISENTRESS TABLETS 400MG [Suspect]
     Indication: HIV INFECTION
     Dosage: TOTAL DAILY DOSE 800 MG
     Route: 048
     Dates: start: 20100722, end: 20110317
  2. ISENTRESS TABLETS 400MG [Suspect]
     Dosage: TOTAL DAILY DOSE 800 MG
     Route: 048
     Dates: start: 20110405
  3. NORVIR [Suspect]
     Indication: HIV INFECTION
     Dosage: TOTAL DAILY DOSE 100 MG
     Route: 048
     Dates: start: 20110318, end: 20110328
  4. PREZISTA [Suspect]
     Indication: HIV INFECTION
     Dosage: TOTAL DAILY DOSE 800 MG
     Route: 048
     Dates: start: 20110318, end: 20110328
  5. TRUVADA [Concomitant]
     Indication: HIV INFECTION
     Dosage: TOTAL DAILY DOSE 1 DF
     Route: 048
     Dates: start: 20100722

REACTIONS (1)
  - Erythema multiforme [Recovered/Resolved]
